FAERS Safety Report 8191353-X (Version None)
Quarter: 2012Q1

REPORT INFORMATION
  Report Type: 
  Country: None (occurrence: None)
  Receive Date: 20120221
  Receipt Date: 20111104
  Transmission Date: 20120608
  Serious: No
  Sender: FDA-Public Use
  Company Number: 045351

PATIENT
  Sex: Male

DRUGS (1)
  1. LACOSAMIDE [Suspect]
     Dosage: 200 MG
     Dates: start: 20090717, end: 20110430

REACTIONS (3)
  - DIZZINESS [None]
  - DIPLOPIA [None]
  - VISION BLURRED [None]
